FAERS Safety Report 19632677 (Version 49)
Quarter: 2024Q1

REPORT INFORMATION
  Report Type: Spontaneous
  Country: CA (occurrence: CA)
  Receive Date: 20210728
  Receipt Date: 20240217
  Transmission Date: 20240410
  Serious: Yes (Hospitalization, Other)
  Sender: FDA-Public Use
  Company Number: CA-CELLTRION INC.-2021CA010130

PATIENT

DRUGS (57)
  1. INFLECTRA [Suspect]
     Active Substance: INFLIXIMAB-DYYB
     Indication: Crohn^s disease
     Dosage: 10 MG/KG, AT Q 0, 2, 6 WEEKS, THEN EVERY 8 WEEKS
     Route: 042
     Dates: start: 20190612, end: 20190819
  2. INFLECTRA [Suspect]
     Active Substance: INFLIXIMAB-DYYB
     Dosage: 400 MG EVERY 8 WEEKS
     Route: 042
     Dates: start: 20191018
  3. INFLECTRA [Suspect]
     Active Substance: INFLIXIMAB-DYYB
     Dosage: 400 MG EVERY 8 WEEKS
     Route: 042
     Dates: start: 20200528
  4. INFLECTRA [Suspect]
     Active Substance: INFLIXIMAB-DYYB
     Dosage: 10 MG/KG AT WEEK 0, 2, 6 AND THEN EVERY 6 WEEKS (RE-INDUCTION)
     Route: 042
     Dates: start: 20200710, end: 20200814
  5. INFLECTRA [Suspect]
     Active Substance: INFLIXIMAB-DYYB
     Dosage: 10 MG/KG EVERY 4 WEEKS (DOSE ROUNDED TO NEAREST HUNDRED)
     Route: 042
     Dates: start: 20200925
  6. INFLECTRA [Suspect]
     Active Substance: INFLIXIMAB-DYYB
     Dosage: 10 MG/KG EVERY 4 WEEKS (DOSE ROUNDED TO NEAREST HUNDRED)
     Route: 042
     Dates: start: 20201207
  7. INFLECTRA [Suspect]
     Active Substance: INFLIXIMAB-DYYB
     Dosage: 7.5 MG/KG EVERY 4 WEEKS (DOSE ROUNDED TO NEAREST HUNDRED) 7500UG/KG
     Route: 042
     Dates: start: 20210108
  8. INFLECTRA [Suspect]
     Active Substance: INFLIXIMAB-DYYB
     Dosage: 7.5 MG/KG EVERY 4 WEEKS (DOSE ROUNDED TO NEAREST HUNDRED) 7500 UG/KG
     Route: 042
     Dates: start: 20210301
  9. INFLECTRA [Suspect]
     Active Substance: INFLIXIMAB-DYYB
     Dosage: 5 MG/KG EVERY 4 WEEKS (ROUND TO NEAREST VIAL)
     Route: 042
     Dates: start: 20210331
  10. INFLECTRA [Suspect]
     Active Substance: INFLIXIMAB-DYYB
     Dosage: 5 MG/KG EVERY 4 WEEKS
     Route: 042
     Dates: start: 20210611
  11. INFLECTRA [Suspect]
     Active Substance: INFLIXIMAB-DYYB
     Dosage: 5 MG/KG EVERY 4 WEEKS
     Route: 042
     Dates: start: 20210611
  12. INFLECTRA [Suspect]
     Active Substance: INFLIXIMAB-DYYB
     Dosage: 5 MG/KG EVERY 4 WEEKS
     Route: 042
     Dates: start: 20210714
  13. INFLECTRA [Suspect]
     Active Substance: INFLIXIMAB-DYYB
     Dosage: 5 MG/KG EVERY 4 WEEKS
     Route: 042
     Dates: start: 20210908
  14. INFLECTRA [Suspect]
     Active Substance: INFLIXIMAB-DYYB
     Dosage: 5 MG/KG EVERY 4 WEEKS
     Route: 042
     Dates: start: 20211005
  15. INFLECTRA [Suspect]
     Active Substance: INFLIXIMAB-DYYB
     Dosage: 5 MG/KG EVERY 4 WEEKS
     Route: 042
     Dates: start: 20211102
  16. INFLECTRA [Suspect]
     Active Substance: INFLIXIMAB-DYYB
     Dosage: 300 MG
     Route: 042
     Dates: start: 20211202
  17. INFLECTRA [Suspect]
     Active Substance: INFLIXIMAB-DYYB
     Dosage: 5 MG/KG, EVERY 4 WEEKS
     Route: 042
     Dates: start: 20220114
  18. INFLECTRA [Suspect]
     Active Substance: INFLIXIMAB-DYYB
     Dosage: 5 MG/KG EVERY 4 WEEKS
     Route: 042
     Dates: start: 20220308
  19. INFLECTRA [Suspect]
     Active Substance: INFLIXIMAB-DYYB
     Dosage: 5 MG/KG EVERY 4 WEEKS
     Route: 042
     Dates: start: 20220427
  20. INFLECTRA [Suspect]
     Active Substance: INFLIXIMAB-DYYB
     Dosage: 5 MG/KG EVERY 4 WEEKS (ROUND TO NEAREST VIAL)
     Route: 042
     Dates: start: 20220623
  21. INFLECTRA [Suspect]
     Active Substance: INFLIXIMAB-DYYB
     Dosage: 5 MG/KG EVERY 4 WEEKS (ROUND TO NEAREST VIAL)
     Route: 042
     Dates: start: 20220721
  22. INFLECTRA [Suspect]
     Active Substance: INFLIXIMAB-DYYB
     Dosage: 5 MG/KG EVERY 4 WEEKS (ROUND TO NEAREST VIAL)
     Route: 042
     Dates: start: 20220819
  23. INFLECTRA [Suspect]
     Active Substance: INFLIXIMAB-DYYB
     Dosage: 5 MG/KG EVERY 4 WEEKS (ROUND TO NEAREST VIAL)
     Route: 042
     Dates: start: 20220916
  24. INFLECTRA [Suspect]
     Active Substance: INFLIXIMAB-DYYB
     Dosage: 5 MG/KG EVERY 4 WEEKS (ROUND TO NEAREST VIAL)
     Route: 042
     Dates: start: 20221021
  25. INFLECTRA [Suspect]
     Active Substance: INFLIXIMAB-DYYB
     Dosage: 5 MG/KG EVERY 4 WEEKS (ROUND TO NEAREST VIAL)
     Route: 042
     Dates: start: 20221116
  26. INFLECTRA [Suspect]
     Active Substance: INFLIXIMAB-DYYB
     Dosage: 5 MG/KG EVERY 4 WEEKS (ROUND TO NEAREST VIAL)
     Route: 042
     Dates: start: 20230203
  27. INFLECTRA [Suspect]
     Active Substance: INFLIXIMAB-DYYB
     Dosage: 300MG (5 MG/KG) EVERY 4 WEEKS (ROUND TO NEAREST VIAL)
     Route: 042
     Dates: start: 20230316
  28. INFLECTRA [Suspect]
     Active Substance: INFLIXIMAB-DYYB
     Dosage: 300 MG (5 MG/KG) EVERY 4 WEEKS (ROUND TO NEAREST VIAL)
     Route: 042
     Dates: start: 20230417
  29. INFLECTRA [Suspect]
     Active Substance: INFLIXIMAB-DYYB
     Dosage: 5 MG/KG EVERY 4 WEEKS (ROUND TO NEAREST VIAL
     Route: 042
     Dates: start: 20230512
  30. INFLECTRA [Suspect]
     Active Substance: INFLIXIMAB-DYYB
     Dosage: 5 MG/KG EVERY 4 WEEKS (ROUND TO NEAREST VIAL
     Route: 042
     Dates: start: 20230707
  31. INFLECTRA [Suspect]
     Active Substance: INFLIXIMAB-DYYB
     Dosage: 300 MG, 4 WEEKS
     Route: 042
     Dates: start: 20230804
  32. INFLECTRA [Suspect]
     Active Substance: INFLIXIMAB-DYYB
     Dosage: 5 MG/KG EVERY 4 WEEK (ROUND TO NEAREST VIAL)
     Route: 042
     Dates: start: 20230901
  33. INFLECTRA [Suspect]
     Active Substance: INFLIXIMAB-DYYB
     Dosage: 5 MG/KG EVERY 4 WEEK (ROUND TO NEAREST VIAL)
     Route: 042
     Dates: start: 20230929
  34. INFLECTRA [Suspect]
     Active Substance: INFLIXIMAB-DYYB
     Dosage: 300 MG, AFTER 6 WEEKS AND 5 DAYS)
     Route: 042
     Dates: start: 20231115
  35. INFLECTRA [Suspect]
     Active Substance: INFLIXIMAB-DYYB
     Dosage: 300 MG, AFTER 3 WEEKS AND 6 DAYS
     Route: 042
     Dates: start: 20231212
  36. INFLECTRA [Suspect]
     Active Substance: INFLIXIMAB-DYYB
     Dosage: 1 DF, ADDITIONAL 5MG/KG (3 DAYS AFTER LAST TREATMENT )
     Route: 042
     Dates: start: 20231215
  37. INFLECTRA [Suspect]
     Active Substance: INFLIXIMAB-DYYB
     Dosage: 10 MG/KG, EVERY 4 WEEKS (ROUND TO NEAREST VIAL) (500MG ROUND TO THE NEAREST HUNDREDTH)
     Route: 042
     Dates: start: 20240117
  38. CIPRO [Concomitant]
     Active Substance: CIPROFLOXACIN HYDROCHLORIDE
     Dosage: UNK
  39. CLINDAMYCIN [Concomitant]
     Active Substance: CLINDAMYCIN
     Dosage: UNK
  40. D [Concomitant]
     Dosage: 1000 IU, 1X/DAY
  41. FERROUS SULFATE [Concomitant]
     Active Substance: FERROUS SULFATE
     Dosage: UNK (IRON INJECTION)
     Dates: start: 20220930
  42. JAMP CALCIUM [Concomitant]
     Dosage: 500 MG, 2X/DAY
  43. JAMP DICYCLOMINE HCL [Concomitant]
     Dosage: UNK, 4X/DAY
  44. JAMP DICYCLOMINE HCL [Concomitant]
     Dosage: 10 MG, (1 DF) 3X/DAY, 2 TABS TID Q8H + 1 TAB HS
  45. LORAZEPAM [Concomitant]
     Active Substance: LORAZEPAM
     Dosage: 1 MG, AS NEEDED, HS PRN
  46. LORAZEPAM [Concomitant]
     Active Substance: LORAZEPAM
     Dosage: UNK, AS NEEDED
  47. LORAZEPAM [Concomitant]
     Active Substance: LORAZEPAM
     Dosage: 1 MG, AS NEEDED, HS PRN 1 (DOSAGE FORM)
  48. MORPHINE SULFATE [Concomitant]
     Active Substance: MORPHINE SULFATE
     Dosage: 1 MG, HALF TABLET, 2X/DAY (1 DF)
  49. METHADONE HYDROCHLORIDE [Concomitant]
     Active Substance: METHADONE HYDROCHLORIDE
     Dosage: 1 MG, 2X/DAY, 1/2 TABLET TWICE DAILY
     Route: 048
  50. MORPHINE [Concomitant]
     Active Substance: MORPHINE
     Dosage: UNK
     Dates: start: 20220210
  51. MYLAN ESOMEPRAZOLE [Concomitant]
     Dosage: 40 MG, 1X/DAY
  52. PREDNISONE [Concomitant]
     Active Substance: PREDNISONE
     Dosage: 1 DF, UNK DOSE
  53. RIVA RANITIDINE [Concomitant]
     Dosage: UNK, 2X/DAY
  54. RIVA RANITIDINE [Concomitant]
     Dosage: 150 MG, 1 TAB  2X/DAY (1 DF)
  55. ONDANSETRON [Concomitant]
     Active Substance: ONDANSETRON
     Dosage: 8 MG, AS NEEDED (8 MG 3/4 TAB TID PRN) (1 DF)
  56. MORPHINE SULFATE [Concomitant]
     Active Substance: MORPHINE SULFATE
     Dosage: 1 DF, AS NEEDED, 5 MG EVERY HOUR PRN
  57. SUCRALFATE [Concomitant]
     Active Substance: SUCRALFATE
     Dosage: 5 ML, 4X/DAY

REACTIONS (56)
  - Abscess limb [Recovered/Resolved]
  - Nephrolithiasis [Recovering/Resolving]
  - Haemoglobin decreased [Unknown]
  - Bacterial infection [Not Recovered/Not Resolved]
  - Groin abscess [Recovered/Resolved]
  - Haematochezia [Not Recovered/Not Resolved]
  - Pneumonia [Recovering/Resolving]
  - Urinary tract infection [Unknown]
  - Neurogenic shock [Not Recovered/Not Resolved]
  - Nocardiosis [Unknown]
  - Vein rupture [Not Recovered/Not Resolved]
  - Hepatic cirrhosis [Not Recovered/Not Resolved]
  - Condition aggravated [Recovered/Resolved]
  - Ureterolithiasis [Not Recovered/Not Resolved]
  - Fistula [Recovering/Resolving]
  - Calculus urinary [Not Recovered/Not Resolved]
  - Urinary tract obstruction [Unknown]
  - Drug ineffective [Unknown]
  - Therapeutic product effect incomplete [Unknown]
  - Urinary tract infection [Recovered/Resolved]
  - Anxiety [Unknown]
  - Chromaturia [Not Recovered/Not Resolved]
  - Bladder discomfort [Not Recovered/Not Resolved]
  - Cystitis interstitial [Unknown]
  - Dehydration [Not Recovered/Not Resolved]
  - Blood urine present [Not Recovered/Not Resolved]
  - Dysuria [Not Recovered/Not Resolved]
  - Vaginal discharge [Unknown]
  - Eye discharge [Not Recovered/Not Resolved]
  - Renal disorder [Unknown]
  - Eye swelling [Not Recovered/Not Resolved]
  - Secretion discharge [Not Recovered/Not Resolved]
  - Ocular hyperaemia [Not Recovered/Not Resolved]
  - Nasal pruritus [Recovered/Resolved]
  - Nasal dryness [Recovered/Resolved]
  - Malaise [Unknown]
  - Discouragement [Unknown]
  - Frustration tolerance decreased [Unknown]
  - Chills [Not Recovered/Not Resolved]
  - COVID-19 [Recovered/Resolved]
  - Pain [Not Recovered/Not Resolved]
  - Vaginal infection [Not Recovered/Not Resolved]
  - Myalgia [Not Recovered/Not Resolved]
  - Pyrexia [Not Recovered/Not Resolved]
  - Conjunctivitis [Recovered/Resolved]
  - Poor venous access [Not Recovered/Not Resolved]
  - Asthenia [Not Recovered/Not Resolved]
  - Mucous stools [Not Recovered/Not Resolved]
  - Streptococcal infection [Unknown]
  - Oropharyngeal pain [Not Recovered/Not Resolved]
  - Fatigue [Not Recovered/Not Resolved]
  - Drug intolerance [Not Recovered/Not Resolved]
  - Diversion colitis [Unknown]
  - Off label use [Unknown]
  - Off label use [Unknown]
  - Incorrect dose administered [Unknown]

NARRATIVE: CASE EVENT DATE: 20190612
